FAERS Safety Report 10270702 (Version 1)
Quarter: 2014Q3

REPORT INFORMATION
  Report Type: Spontaneous
  Country: CA (occurrence: CA)
  Receive Date: 20140701
  Receipt Date: 20140701
  Transmission Date: 20150326
  Serious: Yes (Other)
  Sender: FDA-Public Use
  Company Number: CA-PFIZER INC-2014180315

PATIENT

DRUGS (3)
  1. CELEBREX [Suspect]
     Active Substance: CELECOXIB
     Indication: ARTHRITIS
     Dosage: FROM 09JUN2014 TO 11JUN2014 UNTIL THE PAIN DIMINISHED AND THEN ADMINISTERED HEAT AS NEEDED
     Dates: start: 20140609
  2. NITRO-SPRAY [Suspect]
     Active Substance: ISOSORBIDE DINITRATE
     Dosage: UNK
  3. ACTEMRA [Suspect]
     Active Substance: TOCILIZUMAB
     Indication: RHEUMATOID ARTHRITIS
     Dosage: UNK
     Dates: start: 2006

REACTIONS (5)
  - Loss of consciousness [Unknown]
  - Abdominal pain upper [Unknown]
  - Malaise [Unknown]
  - Hyperhidrosis [Unknown]
  - Chest discomfort [Unknown]

NARRATIVE: CASE EVENT DATE: 20140617
